FAERS Safety Report 10989933 (Version 1)
Quarter: 2015Q1

REPORT INFORMATION
  Report Type: Spontaneous
  Country: US (occurrence: None)
  Receive Date: 20150226
  Receipt Date: 20150226
  Transmission Date: 20150721
  Serious: No
  Sender: FDA-Public Use
  Company Number: TPA2010A04795

PATIENT
  Age: 66 Year
  Sex: Female
  Weight: 114.76 kg

DRUGS (12)
  1. GLIMEPERIDE (ALL OTHER THERAPEUTIC PRODUCTS) [Concomitant]
  2. VITAMIN D (ERGOCALCIFEROL) [Concomitant]
     Active Substance: ERGOCALCIFEROL
  3. ULORIC [Suspect]
     Active Substance: FEBUXOSTAT
     Indication: GOUT
     Route: 048
     Dates: start: 20100819, end: 20100830
  4. ENALAPRIL [Concomitant]
     Active Substance: ENALAPRIL
  5. LEVEMIR [Concomitant]
     Active Substance: INSULIN DETEMIR
  6. NOVOLOG [Concomitant]
     Active Substance: INSULIN ASPART
  7. LEVOTHYROXINE [Concomitant]
     Active Substance: LEVOTHYROXINE
  8. FUROSEMIDE. [Concomitant]
     Active Substance: FUROSEMIDE
  9. KCL (POTASSIUM CHLORIDE) [Concomitant]
  10. FISH OIL [Concomitant]
     Active Substance: FISH OIL
  11. COLCHICINE. [Concomitant]
     Active Substance: COLCHICINE
  12. GLUCOSAMINE [Concomitant]
     Active Substance: GLUCOSAMINE

REACTIONS (1)
  - Pain in extremity [None]

NARRATIVE: CASE EVENT DATE: 201008
